FAERS Safety Report 25878633 (Version 1)
Quarter: 2025Q4

REPORT INFORMATION
  Report Type: Spontaneous
  Country: US (occurrence: None)
  Receive Date: 20251003
  Receipt Date: 20251003
  Transmission Date: 20260118
  Serious: Yes (Hospitalization)
  Sender: FDA-CTU
  Company Number: None

PATIENT
  Age: 80 Year
  Sex: Male

DRUGS (11)
  1. POMALYST [Suspect]
     Active Substance: POMALIDOMIDE
     Indication: Plasma cell myeloma
     Dosage: 4 MG (TAKE ONE CAPSULE DAILY FOR 21 DAYS AND LATER A RE   ORAL?
     Route: 048
     Dates: start: 20250909, end: 20250925
  2. DARZALEX 400MG/20ML INJ, 1 VIAL [Concomitant]
  3. RAMIPRIL 2.5MG CAPSULES [Concomitant]
  4. VITAMIN s12 2000McG TABLETS 60 [Concomitant]
  5. VITAMIN D3 5,000 IU (CHOLE) TAB [Concomitant]
  6. CLOPIDOGREL [Concomitant]
     Active Substance: CLOPIDOGREL BISULFATE
  7. FINASTERIDE [Concomitant]
     Active Substance: FINASTERIDE
  8. GABAPENTIN 400MG CAPSULES [Concomitant]
  9. LOKELMA [Concomitant]
     Active Substance: SODIUM ZIRCONIUM CYCLOSILICATE
  10. AMLODIPINE BESYLATE [Concomitant]
     Active Substance: AMLODIPINE BESYLATE
  11. GLIMEPIRIDE [Concomitant]
     Active Substance: GLIMEPIRIDE

REACTIONS (4)
  - Fatigue [None]
  - Increased appetite [None]
  - Insomnia [None]
  - White blood cell count decreased [None]

NARRATIVE: CASE EVENT DATE: 20250924
